FAERS Safety Report 20875438 (Version 1)
Quarter: 2022Q2

REPORT INFORMATION
  Report Type: Spontaneous
  Country: ID (occurrence: ID)
  Receive Date: 20220526
  Receipt Date: 20220526
  Transmission Date: 20220721
  Serious: Yes (Death)
  Sender: FDA-Public Use
  Company Number: ID-ASTELLAS-2022US019018

PATIENT
  Age: 74 Year
  Sex: Male

DRUGS (1)
  1. XTANDI [Suspect]
     Active Substance: ENZALUTAMIDE
     Indication: Prostate cancer metastatic
     Route: 048

REACTIONS (5)
  - Feeding disorder [Fatal]
  - COVID-19 [Fatal]
  - Condition aggravated [Unknown]
  - Underdose [Unknown]
  - Off label use [Unknown]
